FAERS Safety Report 24592866 (Version 1)
Quarter: 2024Q4

REPORT INFORMATION
  Report Type: Spontaneous
  Country: US (occurrence: US)
  Receive Date: 20241108
  Receipt Date: 20241108
  Transmission Date: 20250114
  Serious: Yes (Death)
  Sender: BAYER HEALTHCARE LLC
  Company Number: US-BAYER-2024A157924

PATIENT
  Age: 67 Year
  Sex: Male

DRUGS (14)
  1. ASPIRIN [Suspect]
     Active Substance: ASPIRIN
  2. ACYCLOVIR [Concomitant]
     Active Substance: ACYCLOVIR
  3. BRIMONIDINE [Concomitant]
     Active Substance: BRIMONIDINE TARTRATE
  4. FAMOTIDINE [Concomitant]
     Active Substance: FAMOTIDINE
  5. FINASTERIDE [Concomitant]
     Active Substance: FINASTERIDE
  6. GABAPENTIN [Concomitant]
     Active Substance: GABAPENTIN
  7. LIDOCAINE [Concomitant]
     Active Substance: LIDOCAINE
  8. LATANOPROST [Concomitant]
     Active Substance: LATANOPROST
  9. MORPHINE [Concomitant]
     Active Substance: MORPHINE
  10. SENNA [Concomitant]
     Active Substance: SENNA LEAF\SENNOSIDES\SENNOSIDES A AND B
  11. DEXAMETHASONE [Concomitant]
     Active Substance: DEXAMETHASONE
  12. CARBIDOPA\LEVODOPA [Concomitant]
     Active Substance: CARBIDOPA\LEVODOPA
  13. ROPINIROLE [Concomitant]
     Active Substance: ROPINIROLE
  14. AMANTADINE [Concomitant]
     Active Substance: AMANTADINE

REACTIONS (1)
  - Haemoptysis [Fatal]
